FAERS Safety Report 5046591-1 (Version None)
Quarter: 2006Q2

REPORT INFORMATION
  Report Type: 
  Country: None (occurrence: None)
  Receive Date: 20060601
  Receipt Date: 20060213
  Transmission Date: 20061013
  Serious: No
  Sender: FDA-Public Use
  Company Number: 2006PV008625

PATIENT
  Age: 57 Year
  Sex: Female
  Weight: 66.6788 kg

DRUGS (2)
  1. BYETTA [Suspect]
     Indication: METABOLIC SYNDROME
     Dosage: 5 MCG ; UNKNOWN ; SC
     Route: 058
     Dates: start: 20060115
  2. ANTIOBIOTIC [Concomitant]

REACTIONS (3)
  - EAR INFECTION [None]
  - FLUID RETENTION [None]
  - WEIGHT INCREASED [None]
